FAERS Safety Report 9475686 (Version 2)
Quarter: 2013Q3

REPORT INFORMATION
  Report Type: Spontaneous
  Country: GB (occurrence: GB)
  Receive Date: 20130826
  Receipt Date: 20130826
  Transmission Date: 20140515
  Serious: Yes (Other)
  Sender: FDA-Public Use
  Company Number: PHFR2013GB004647

PATIENT
  Age: 34 Year
  Sex: Male

DRUGS (7)
  1. CLOZARIL [Suspect]
     Indication: SCHIZOPHRENIA
     Dosage: UNK UKN, UNK
     Route: 048
     Dates: start: 20120411
  2. CLOZARIL [Suspect]
     Dosage: 100/175 MG
  3. CLOZARIL [Suspect]
     Dosage: 125/175 MG
  4. CLOZARIL [Suspect]
     Dosage: 275 MG, DAILY
     Route: 048
     Dates: start: 20130808
  5. BUPRENORPHINE [Concomitant]
     Indication: PAIN IN EXTREMITY
     Dosage: UNK
  6. TOPIRAMATE [Concomitant]
     Indication: AFFECTIVE DISORDER
     Dosage: 300 MG, DAILY
     Route: 048
  7. PAROXETINE [Concomitant]
     Dosage: UNK

REACTIONS (4)
  - Hypotension [Recovered/Resolved]
  - Dizziness [Unknown]
  - Circulatory collapse [Recovered/Resolved]
  - Convulsion [Unknown]
